FAERS Safety Report 6078415-8 (Version None)
Quarter: 2009Q1

REPORT INFORMATION
  Report Type: 
  Country: None (occurrence: None)
  Receive Date: 20090212
  Receipt Date: 20090203
  Transmission Date: 20090719
  Serious: Yes (Hospitalization)
  Sender: FDA-Public Use
  Company Number: TPA2009A00177

PATIENT
  Age: 62 Year
  Sex: Male
  Weight: 92.5338 kg

DRUGS (10)
  1. ACTOS [Suspect]
     Indication: TYPE 2 DIABETES MELLITUS
     Dosage: 30 MG, 1 IN 1 D, PER ORAL
     Route: 048
     Dates: start: 20020101, end: 20090101
  2. ACTOS [Suspect]
     Indication: TYPE 2 DIABETES MELLITUS
     Dosage: 30 MG, 1 IN 1 D, PER ORAL
     Route: 048
     Dates: start: 20090101
  3. GLUCOPHAGE [Concomitant]
  4. METOPROLOL TARTRATE [Concomitant]
  5. POTASSIUM CHLORIDE [Concomitant]
  6. FOLATE (FOLATE SODIUM) [Concomitant]
  7. IRON (IRON) [Concomitant]
  8. MULTIVITAMIN [Concomitant]
  9. ASPIRIN [Concomitant]
  10. SERZONE [Concomitant]

REACTIONS (5)
  - CARDIAC FAILURE CHRONIC [None]
  - FLUID RETENTION [None]
  - HAEMOLYTIC ANAEMIA [None]
  - MITRAL VALVE DISEASE [None]
  - NEUROPATHY PERIPHERAL [None]
